FAERS Safety Report 8487484-7 (Version None)
Quarter: 2012Q3

REPORT INFORMATION
  Report Type: 
  Country: None (occurrence: None)
  Receive Date: 20120705
  Receipt Date: 20120627
  Transmission Date: 20120928
  Serious: Yes (Hospitalization)
  Sender: FDA-Public Use
  Company Number: JP-BAYER-2011-066753

PATIENT
  Age: 78 Year
  Sex: Male
  Weight: 44 kg

DRUGS (15)
  1. MUCOSTA [Concomitant]
     Dosage: DAILY DOSE 200 MG
     Route: 048
     Dates: start: 20040101
  2. MIYA BM [Concomitant]
     Dosage: DAILY DOSE 3 G
     Route: 048
     Dates: start: 20110602
  3. UREPEARL [Concomitant]
     Dosage: UNK
     Route: 061
     Dates: start: 20110303, end: 20110309
  4. WAKADENIN [Concomitant]
     Dosage: DAILY DOSE 45 MG
     Route: 048
     Dates: start: 20110101, end: 20110328
  5. MOBIC [Concomitant]
     Dosage: DAILY DOSE 10 MG
     Route: 048
     Dates: start: 20090101
  6. LENDORMIN [Concomitant]
     Dosage: 0.25 MG, QD
     Route: 048
     Dates: start: 20090101, end: 20110328
  7. GOREI-SAN [Concomitant]
     Dosage: 22.5 G, UNK
     Route: 048
     Dates: start: 20110602
  8. SORAFENIB (RAF KINASE INHIBITOR) [Suspect]
     Dosage: 400 MG, QD
     Route: 048
     Dates: start: 20110329, end: 20110413
  9. FAMOTIDINE [Concomitant]
     Dosage: DAILY DOSE 20 MG
     Route: 048
     Dates: start: 20110101
  10. CEFDINIR [Concomitant]
     Dosage: DAILY DOSE 300 MG
     Route: 048
     Dates: start: 20110325, end: 20110329
  11. GOODMIN [Concomitant]
     Dosage: 0.25 MG, QD
     Route: 048
     Dates: start: 20110329
  12. SORAFENIB (RAF KINASE INHIBITOR) [Suspect]
     Indication: HEPATIC NEOPLASM MALIGNANT
     Dosage: 400 MG, QD
     Route: 048
     Dates: start: 20110303, end: 20110321
  13. SORAFENIB (RAF KINASE INHIBITOR) [Suspect]
     Dosage: 400 MG, QD
     Route: 048
     Dates: start: 20110602, end: 20110610
  14. PYDOXAL [Concomitant]
     Dosage: 400 MG, UNK
     Route: 048
     Dates: start: 20110303, end: 20110413
  15. VITAMEDIN [Concomitant]
     Dosage: DAILY DOSE 75 MG
     Route: 048
     Dates: start: 20110512, end: 20110601

REACTIONS (9)
  - INFECTIOUS PLEURAL EFFUSION [None]
  - HYPOALBUMINAEMIA [None]
  - ABDOMINAL PAIN [None]
  - IMPAIRED HEALING [None]
  - PRURITUS [None]
  - RASH [None]
  - DYSPHONIA [None]
  - NAUSEA [None]
  - HYPERTENSION [None]
